FAERS Safety Report 7146249-9 (Version None)
Quarter: 2010Q4

REPORT INFORMATION
  Report Type: 
  Country: None (occurrence: None)
  Receive Date: 20101208
  Receipt Date: 20101130
  Transmission Date: 20110411
  Serious: Yes (Hospitalization)
  Sender: FDA-Public Use
  Company Number: US-EISAI INC.-E7389-01070-CLI-US

PATIENT
  Sex: Male
  Weight: 100 kg

DRUGS (21)
  1. E7389 (BOLD) [Suspect]
     Indication: NON-SMALL CELL LUNG CANCER
     Route: 041
     Dates: start: 20101013, end: 20101123
  2. ERLOTINIB [Suspect]
     Indication: NON-SMALL CELL LUNG CANCER
     Route: 048
     Dates: start: 20101014, end: 20101123
  3. SERTRALINE [Concomitant]
     Indication: DEPRESSION
     Route: 048
     Dates: start: 20090601
  4. TAMSULOSIN [Concomitant]
     Route: 048
     Dates: start: 20100920
  5. SPIRIVA [Concomitant]
     Route: 048
     Dates: start: 20090109
  6. FUROSEMIDE [Concomitant]
     Route: 048
     Dates: start: 20091001
  7. POTASSIUM CHLORIDE [Concomitant]
     Route: 048
     Dates: start: 20100923
  8. PROAIR HFA [Concomitant]
     Route: 048
     Dates: start: 20091109
  9. MS CONTIN [Concomitant]
     Indication: CHEST PAIN
     Route: 048
     Dates: start: 20101005
  10. ROBAXIN [Concomitant]
     Route: 048
     Dates: start: 20060601
  11. ELAVIL [Concomitant]
     Indication: DEPRESSION
     Route: 048
     Dates: start: 20070601
  12. COMPAZINE [Concomitant]
     Indication: NAUSEA
     Route: 048
     Dates: start: 20091222
  13. COMPAZINE [Concomitant]
     Indication: VOMITING
  14. DOXYCYCLINE [Concomitant]
     Indication: RASH
     Route: 048
     Dates: start: 20101020
  15. DOXYCYCLINE [Concomitant]
     Indication: VOMITING
  16. MILK OF MAGNESIA [Concomitant]
     Indication: CONSTIPATION
     Route: 048
     Dates: start: 20091109
  17. MILK OF MAGNESIA [Concomitant]
     Indication: VOMITING
  18. LEVAQUIN [Concomitant]
     Indication: PROPHYLAXIS
     Route: 048
     Dates: start: 20101111
  19. MEDROL [Concomitant]
     Indication: RASH
     Route: 048
     Dates: start: 20101117
  20. CLINDAMYCIN [Concomitant]
     Indication: RASH
     Route: 061
     Dates: start: 20101117
  21. LOTRISONE [Concomitant]
     Indication: RASH
     Route: 061
     Dates: start: 20101117

REACTIONS (2)
  - ACUTE RESPIRATORY FAILURE [None]
  - PNEUMONIA [None]
